FAERS Safety Report 5104161-0 (Version None)
Quarter: 2006Q3

REPORT INFORMATION
  Report Type: 
  Country: None (occurrence: None)
  Receive Date: 20060911
  Receipt Date: 20060901
  Transmission Date: 20061208
  Serious: Yes (Hospitalization)
  Sender: FDA-Public Use
  Company Number: HQWYE259701SEP06

PATIENT
  Age: 80 Year
  Sex: Female

DRUGS (4)
  1. AVLOCARDYL (PROPRANOLOL HYDROCHLORIDE, TABLET) [Suspect]
     Indication: SICK SINUS SYNDROME
     Dates: start: 20060726
  2. VALPROATE SODIUM [Suspect]
     Indication: BIPOLAR DISORDER
     Dosage: 600 MG 1X PER 1 DAY ORAL
     Route: 048
     Dates: end: 20060804
  3. FURADANTIN [Suspect]
     Indication: URINARY TRACT INFECTION
     Dosage: ORAL
     Route: 048
     Dates: end: 20060726
  4. LEVOTHYROXINE SODIUM [Concomitant]

REACTIONS (4)
  - INTERSTITIAL LUNG DISEASE [None]
  - MULTI-ORGAN FAILURE [None]
  - RENAL FAILURE [None]
  - SHOCK [None]
